FAERS Safety Report 8047472-1 (Version None)
Quarter: 2012Q1

REPORT INFORMATION
  Report Type: 
  Country: None (occurrence: None)
  Receive Date: 20120116
  Receipt Date: 20120111
  Transmission Date: 20120608
  Serious: Yes (Other)
  Sender: FDA-Public Use
  Company Number: SE-ABBOTT-12P-150-0892691-00

PATIENT
  Age: 54 Year
  Sex: Male

DRUGS (3)
  1. TEGRETOL [Concomitant]
     Indication: EPILEPSY
  2. KEPPRA [Concomitant]
     Indication: EPILEPSY
  3. HUMIRA [Suspect]
     Indication: CROHN'S DISEASE
     Route: 058
     Dates: start: 20080101

REACTIONS (2)
  - EPILEPSY [None]
  - GLIOBLASTOMA MULTIFORME [None]
